FAERS Safety Report 7526618-5 (Version None)
Quarter: 2011Q2

REPORT INFORMATION
  Report Type: 
  Country: None (occurrence: None)
  Receive Date: 20110606
  Receipt Date: 20110531
  Transmission Date: 20111010
  Serious: Yes (Other)
  Sender: FDA-Public Use
  Company Number: JP-EISAI INC-E2020-09210-SPO-JP

PATIENT
  Age: 91 Year
  Sex: Male

DRUGS (8)
  1. URINORM [Concomitant]
     Dosage: UNKNOWN
     Dates: start: 20081001, end: 20081001
  2. ALESION [Concomitant]
     Dates: start: 20081001, end: 20081001
  3. ARICEPT [Suspect]
     Route: 048
     Dates: start: 20080904, end: 20081030
  4. EPINASTINE [Concomitant]
     Dosage: UNKNOWN
     Dates: start: 20081001, end: 20081001
  5. GRAMALIL [Concomitant]
     Dosage: UNKNOWN
     Route: 048
     Dates: start: 20081001, end: 20081001
  6. ARICEPT [Suspect]
     Route: 048
     Dates: start: 20081031, end: 20090419
  7. ARICEPT [Suspect]
     Route: 048
     Dates: start: 20090420
  8. CANDESARTAN CILEXETIL [Concomitant]
     Dosage: UNKNOWN
     Dates: start: 20081001, end: 20081001

REACTIONS (3)
  - ELECTROCARDIOGRAM QT PROLONGED [None]
  - EPILEPSY [None]
  - ARRHYTHMIA [None]
